FAERS Safety Report 9009830 (Version 1)
Quarter: 2013Q1

REPORT INFORMATION
  Report Type: Spontaneous
  Country: US (occurrence: US)
  Receive Date: 20130110
  Receipt Date: 20130110
  Transmission Date: 20140127
  Serious: Yes (Hospitalization)
  Sender: FDA-Public Use
  Company Number: US-BAYER-2013-002295

PATIENT
  Age: 18 Year
  Sex: Female
  Weight: 63 kg

DRUGS (5)
  1. YASMIN [Suspect]
     Indication: MENSTRUAL CYCLE MANAGEMENT
     Dosage: UNK
  2. YASMIN [Suspect]
     Indication: DYSMENORRHOEA
  3. COLACE [Concomitant]
     Dosage: 250, BID
     Route: 048
  4. SENNA [Concomitant]
     Dosage: 8.6 MG, NIGHTLY
     Route: 048
  5. VICODIN [Concomitant]
     Dosage: 1 DF, Q 6 H PRN

REACTIONS (3)
  - Pulmonary embolism [None]
  - Deep vein thrombosis [Recovered/Resolved]
  - Pelvic venous thrombosis [Recovered/Resolved]
